FAERS Safety Report 6657629-X (Version None)
Quarter: 2010Q1

REPORT INFORMATION
  Report Type: 
  Country: None (occurrence: None)
  Receive Date: 20100326
  Receipt Date: 20100317
  Transmission Date: 20100710
  Serious: Yes (Other)
  Sender: FDA-Public Use
  Company Number: 20108448

PATIENT
  Age: 6 Year
  Sex: Male

DRUGS (1)
  1. LIORESAL [Suspect]
     Indication: MUSCLE SPASTICITY
     Dosage: 239-100 MCG, DAILY, INTRATHECAL
     Route: 037

REACTIONS (2)
  - FALL [None]
  - MUSCLE TIGHTNESS [None]
